FAERS Safety Report 11776282 (Version 4)
Quarter: 2018Q4

REPORT INFORMATION
  Report Type: Spontaneous
  Country: US (occurrence: US)
  Receive Date: 20151125
  Receipt Date: 20181218
  Transmission Date: 20190204
  Serious: Yes (Hospitalization)
  Sender: FDA-Public Use
  Company Number: US-ASTRAZENECA-2015SF11672

PATIENT
  Age: 52 Year
  Sex: Female
  Weight: 163.3 kg

DRUGS (12)
  1. SYMBICORT [Suspect]
     Active Substance: BUDESONIDE\FORMOTEROL FUMARATE DIHYDRATE
     Indication: ASTHMA
     Dosage: 160/4.5 2 PUFFS TWO TIMES A DAY
     Route: 055
     Dates: start: 201606
  2. OXYGEN. [Concomitant]
     Active Substance: OXYGEN
  3. ALBUTEROL. [Concomitant]
     Active Substance: ALBUTEROL
     Dosage: 2.5/3 MLS EVERY 6 HOURS SOMETIMES AS NEEDED
  4. TUDORZA PRESSAIR [Suspect]
     Active Substance: ACLIDINIUM BROMIDE
     Indication: ASTHMA
     Dosage: ONE INHALATION TWICE DAILY
     Route: 055
     Dates: start: 201606
  5. SYMBICORT [Suspect]
     Active Substance: BUDESONIDE\FORMOTEROL FUMARATE DIHYDRATE
     Indication: CHRONIC OBSTRUCTIVE PULMONARY DISEASE
     Dosage: 160/4.5 2 PUFFS TWO TIMES A DAY
     Route: 055
     Dates: start: 201606
  6. SYMBICORT [Suspect]
     Active Substance: BUDESONIDE\FORMOTEROL FUMARATE DIHYDRATE
     Indication: CHRONIC OBSTRUCTIVE PULMONARY DISEASE
     Dosage: 160/4.5 2 PUFFS TWO TIMES A DAY
     Route: 055
     Dates: start: 2014
  7. TUDORZA PRESSAIR [Suspect]
     Active Substance: ACLIDINIUM BROMIDE
     Indication: CHRONIC OBSTRUCTIVE PULMONARY DISEASE
     Route: 055
     Dates: start: 2013
  8. TUDORZA PRESSAIR [Suspect]
     Active Substance: ACLIDINIUM BROMIDE
     Indication: ASTHMA
     Route: 055
     Dates: start: 2013
  9. TUDORZA PRESSAIR [Suspect]
     Active Substance: ACLIDINIUM BROMIDE
     Indication: CHRONIC OBSTRUCTIVE PULMONARY DISEASE
     Dosage: ONE INHALATION TWICE DAILY
     Route: 055
     Dates: start: 201606
  10. SYMBICORT [Suspect]
     Active Substance: BUDESONIDE\FORMOTEROL FUMARATE DIHYDRATE
     Indication: CHRONIC OBSTRUCTIVE PULMONARY DISEASE
     Dosage: 80/4.5 AS OF A YEAR AGO TWO PUFFS TWICE DAILY
     Route: 055
  11. SYMBICORT [Suspect]
     Active Substance: BUDESONIDE\FORMOTEROL FUMARATE DIHYDRATE
     Indication: ASTHMA
     Dosage: 80/4.5 AS OF A YEAR AGO TWO PUFFS TWICE DAILY
     Route: 055
  12. SYMBICORT [Suspect]
     Active Substance: BUDESONIDE\FORMOTEROL FUMARATE DIHYDRATE
     Indication: ASTHMA
     Dosage: 160/4.5 2 PUFFS TWO TIMES A DAY
     Route: 055
     Dates: start: 2014

REACTIONS (10)
  - Weight decreased [Unknown]
  - Dyspnoea [Not Recovered/Not Resolved]
  - Pneumonia [Unknown]
  - Bronchitis [Recovered/Resolved]
  - Sleep apnoea syndrome [Not Recovered/Not Resolved]
  - Lung neoplasm malignant [Unknown]
  - Ear infection [Unknown]
  - Product dose omission [Unknown]
  - Product quality issue [Unknown]
  - Renal cancer [Unknown]

NARRATIVE: CASE EVENT DATE: 2015
